FAERS Safety Report 4460809-5 (Version None)
Quarter: 2004Q3

REPORT INFORMATION
  Report Type: 
  Country: None (occurrence: None)
  Receive Date: 20040928
  Receipt Date: 20040809
  Transmission Date: 20050211
  Serious: No
  Sender: FDA-Public Use
  Company Number: US-GLAXOSMITHKLINE-A0521524A

PATIENT
  Sex: Male

DRUGS (17)
  1. ADVAIR DISKUS 100/50 [Suspect]
     Indication: ASTHMA
     Dosage: 1PUFF TWICE PER DAY
     Route: 055
     Dates: start: 20000101
  2. ALBUTEROL [Concomitant]
  3. OXYGEN [Concomitant]
  4. OXYCONTIN [Concomitant]
  5. TRIMEDAL [Concomitant]
  6. LEXAPRO [Concomitant]
  7. XANAX [Concomitant]
  8. AMBIEN [Concomitant]
  9. MIRTAZAPINE [Concomitant]
  10. BEXTRA [Concomitant]
  11. PROTONIX [Concomitant]
  12. RANITIDINE [Concomitant]
  13. CARAFATE [Concomitant]
  14. ZITHROMAX [Concomitant]
  15. AMOXICILLIN [Concomitant]
  16. SEREVENT [Concomitant]
  17. IMITREX [Concomitant]

REACTIONS (3)
  - INCREASED VISCOSITY OF BRONCHIAL SECRETION [None]
  - PHARYNGOLARYNGEAL PAIN [None]
  - WHEEZING [None]
